FAERS Safety Report 13422767 (Version 1)
Quarter: 2017Q2

REPORT INFORMATION
  Report Type: Spontaneous
  Country: US (occurrence: US)
  Receive Date: 20170410
  Receipt Date: 20170410
  Transmission Date: 20170830
  Serious: No
  Sender: FDA-Public Use
  Company Number: US-BAYER-2017-053330

PATIENT
  Sex: Female
  Weight: 73 kg

DRUGS (4)
  1. ALEVE [Suspect]
     Active Substance: NAPROXEN SODIUM
     Indication: ARTHRALGIA
     Dosage: 2 DF, UNK
     Route: 048
  2. BAYER LOW DOSE [Concomitant]
     Active Substance: ASPIRIN
     Indication: PROPHYLAXIS
     Route: 048
  3. ALEVE [Suspect]
     Active Substance: NAPROXEN SODIUM
     Indication: ARTHRALGIA
     Dosage: 2 DF, UNK
     Route: 048
  4. BAYER ASPIRIN [Suspect]
     Active Substance: ASPIRIN
     Indication: ARTHRALGIA
     Dosage: UNK
     Route: 048

REACTIONS (1)
  - Product use issue [Unknown]
